FAERS Safety Report 6767644-3 (Version None)
Quarter: 2010Q2

REPORT INFORMATION
  Report Type: 
  Country: None (occurrence: None)
  Receive Date: 20100614
  Receipt Date: 20100511
  Transmission Date: 20101027
  Serious: Yes (Hospitalization, Other)
  Sender: FDA-Public Use
  Company Number: US-BAYER-201019533NA

PATIENT
  Age: 30 Year
  Sex: Female

DRUGS (11)
  1. BETASERON [Suspect]
     Indication: MULTIPLE SCLEROSIS
     Dosage: TOTAL DAILY DOSE: 8 MIU
     Route: 058
     Dates: start: 20010314
  2. VICODIN [Concomitant]
     Indication: ANALGESIC THERAPY
     Route: 048
     Dates: start: 20100420
  3. ZANAFLEX [Concomitant]
     Route: 048
     Dates: start: 20091222
  4. XANAX [Concomitant]
     Indication: ANXIETY
     Dosage: EVERY 12 HOURS
  5. LEVAQUIN [Concomitant]
     Route: 048
  6. NAPROXEN [Concomitant]
     Route: 048
  7. MULTI-VITAMINS [Concomitant]
     Route: 048
  8. FISH OIL [Concomitant]
     Route: 048
  9. VITAMIN E COMPLETE [Concomitant]
     Route: 048
  10. ZOVIA 1/35E [Concomitant]
     Dosage: (1-35 MG-MCG)
     Route: 048
  11. ZOVIRAX [Concomitant]
     Route: 048

REACTIONS (9)
  - ABDOMINAL PAIN [None]
  - CHILLS [None]
  - FAT NECROSIS [None]
  - INFLAMMATION [None]
  - INJECTION SITE CELLULITIS [None]
  - PANNICULITIS [None]
  - PELVIC PAIN [None]
  - RASH ERYTHEMATOUS [None]
  - URINARY TRACT INFECTION [None]
